FAERS Safety Report 6573570-5 (Version None)
Quarter: 2010Q1

REPORT INFORMATION
  Report Type: 
  Country: None (occurrence: None)
  Receive Date: 20100208
  Receipt Date: 20100130
  Transmission Date: 20100710
  Serious: Yes (Hospitalization)
  Sender: FDA-Public Use
  Company Number: US-SANOFI-AVENTIS-2010SA006656

PATIENT
  Age: 63 Year
  Sex: Female

DRUGS (3)
  1. LANTUS [Suspect]
     Indication: TYPE 2 DIABETES MELLITUS
     Dosage: DOSE:40 UNIT(S)
     Route: 058
     Dates: start: 20100101
  2. LANTUS [Suspect]
     Dosage: 20 - 30 UNITS DEPENDING ON BLOOD SUGAR
     Route: 058
     Dates: start: 20080101, end: 20100101
  3. SOLOSTAR [Suspect]
     Indication: TYPE 2 DIABETES MELLITUS
     Dates: start: 20080101

REACTIONS (8)
  - BLOOD GLUCOSE INCREASED [None]
  - CHILLS [None]
  - INFECTION [None]
  - PHLEBITIS [None]
  - PNEUMONIA [None]
  - PYREXIA [None]
  - SKIN ULCER [None]
  - VOMITING [None]
